FAERS Safety Report 5740414-0 (Version None)
Quarter: 2008Q2

REPORT INFORMATION
  Report Type: 
  Country: None (occurrence: None)
  Receive Date: 20080516
  Receipt Date: 20080502
  Transmission Date: 20081010
  Serious: Yes (Disabling)
  Sender: FDA-Public Use
  Company Number: GB-ELI_LILLY_AND_COMPANY-GB200804004366

PATIENT
  Sex: Female
  Weight: 74 kg

DRUGS (4)
  1. FORTEO [Suspect]
     Indication: OSTEOPOROSIS
     Dosage: 20 UG, UNKNOWN
     Route: 058
     Dates: start: 20080312, end: 20080407
  2. CALCIUM [Concomitant]
     Dosage: UNK, UNKNOWN
     Route: 065
  3. VITAMIN D [Concomitant]
     Dosage: UNK, UNKNOWN
     Route: 065
  4. PREDNISONE TAB [Concomitant]
     Indication: RHEUMATOID ARTHRITIS
     Dosage: 7 MG, UNKNOWN
     Route: 065
     Dates: start: 20050101

REACTIONS (4)
  - DIZZINESS [None]
  - NAUSEA [None]
  - VERTIGO [None]
  - VISUAL DISTURBANCE [None]
